FAERS Safety Report 7166935-4 (Version None)
Quarter: 2010Q4

REPORT INFORMATION
  Report Type: 
  Country: None (occurrence: None)
  Receive Date: 20101216
  Receipt Date: 20101207
  Transmission Date: 20110411
  Serious: Yes (Hospitalization)
  Sender: FDA-Public Use
  Company Number: CA-ASTRAZENECA-2010SE58155

PATIENT
  Age: 79 Year
  Sex: Female

DRUGS (3)
  1. NEXIUM [Suspect]
     Indication: GASTROOESOPHAGEAL REFLUX DISEASE
     Route: 048
     Dates: start: 20070101
  2. ADVIL [Concomitant]
     Indication: ARTHRITIS
     Dosage: OCCASIONNALLY
  3. CENTRUM VITAMINS [Concomitant]
     Dosage: OCCASIONNALLY
     Route: 048
     Dates: start: 20080101

REACTIONS (3)
  - ANAEMIA [None]
  - DIARRHOEA [None]
  - FALL [None]
